FAERS Safety Report 21984062 (Version 1)
Quarter: 2023Q1

REPORT INFORMATION
  Report Type: Spontaneous
  Country: US (occurrence: None)
  Receive Date: 20230209
  Receipt Date: 20230209
  Transmission Date: 20230418
  Serious: Yes (Hospitalization)
  Sender: FDA-Public Use
  Company Number: None

PATIENT
  Age: 76 Year
  Sex: Female

DRUGS (1)
  1. AFINITOR [Suspect]
     Active Substance: EVEROLIMUS
     Dosage: FREQUENCY : DAILY;?
     Route: 048

REACTIONS (6)
  - Pneumothorax [None]
  - Decreased appetite [None]
  - Weight decreased [None]
  - Diarrhoea [None]
  - Drug ineffective [None]
  - Malignant neoplasm progression [None]

NARRATIVE: CASE EVENT DATE: 20230209
